FAERS Safety Report 15895623 (Version 1)
Quarter: 2019Q1

REPORT INFORMATION
  Report Type: Report from Study
  Country: GB (occurrence: GB)
  Receive Date: 20190131
  Receipt Date: 20190131
  Transmission Date: 20190417
  Serious: Yes (Other)
  Sender: FDA-Public Use
  Company Number: GB-TEVA-2019-GB-1005812

PATIENT
  Sex: Female

DRUGS (2)
  1. PREGABALIN. [Concomitant]
     Active Substance: PREGABALIN
  2. COPAXONE [Suspect]
     Active Substance: GLATIRAMER ACETATE
     Indication: MULTIPLE SCLEROSIS
     Dosage: INJECTION, 40MG/ML, THREE TIMES WEEKLY, SUBCUTANEOUS
     Route: 058
     Dates: start: 20141204

REACTIONS (7)
  - Feeling hot [Unknown]
  - Loss of consciousness [Unknown]
  - Vomiting [Unknown]
  - Flushing [Unknown]
  - Hypersensitivity [Unknown]
  - Chills [Unknown]
  - Skin discolouration [Unknown]
